FAERS Safety Report 12897796 (Version 1)
Quarter: 2016Q4

REPORT INFORMATION
  Report Type: Spontaneous
  Country: FR (occurrence: FR)
  Receive Date: 20161031
  Receipt Date: 20161031
  Transmission Date: 20170207
  Serious: Yes (Hospitalization)
  Sender: FDA-Public Use
  Company Number: FR-PFIZER INC-2016493142

PATIENT
  Age: 54 Year
  Sex: Female

DRUGS (2)
  1. NAVELBINE [Suspect]
     Active Substance: VINORELBINE TARTRATE
     Indication: BRONCHIAL CARCINOMA
     Dosage: 60 MG, UNK ON D1 AND D8
     Route: 042
     Dates: start: 20160913
  2. CARBOPLATINE HOSPIRA [Suspect]
     Active Substance: CARBOPLATIN
     Indication: BRONCHIAL CARCINOMA
     Dosage: 830 MG, UNK
     Route: 042
     Dates: start: 20160913, end: 20160913

REACTIONS (2)
  - Chest pain [Recovered/Resolved]
  - Abdominal pain upper [Unknown]

NARRATIVE: CASE EVENT DATE: 20160920
